FAERS Safety Report 6324568-3 (Version None)
Quarter: 2009Q3

REPORT INFORMATION
  Report Type: 
  Country: None (occurrence: None)
  Receive Date: 20090824
  Receipt Date: 20090427
  Transmission Date: 20100115
  Serious: No
  Sender: FDA-Public Use
  Company Number: US-ABBOTT-09P-163-0570192-00

PATIENT
  Sex: Female
  Weight: 87.168 kg

DRUGS (7)
  1. NIASPAN [Suspect]
     Indication: BLOOD CHOLESTEROL INCREASED
     Dosage: AT BEDTIME
     Dates: start: 20090420
  2. METFORMIN HCL [Concomitant]
     Indication: DRUG USE FOR UNKNOWN INDICATION
  3. HUMALIN 70/30 [Concomitant]
     Indication: DRUG USE FOR UNKNOWN INDICATION
  4. OTC ARTHRITIS MEDICATION [Concomitant]
     Indication: DRUG USE FOR UNKNOWN INDICATION
  5. CAVA CAVA [Concomitant]
     Indication: ANXIOLYTIC THERAPY
  6. SOMETHING FOR BLADDER [Concomitant]
     Indication: DRUG USE FOR UNKNOWN INDICATION
  7. OTC SLEEPER [Concomitant]
     Indication: DRUG USE FOR UNKNOWN INDICATION

REACTIONS (2)
  - DIZZINESS [None]
  - FLUSHING [None]
